FAERS Safety Report 16047311 (Version 1)
Quarter: 2019Q1

REPORT INFORMATION
  Report Type: Spontaneous
  Country: JP (occurrence: JP)
  Receive Date: 20190307
  Receipt Date: 20190307
  Transmission Date: 20190418
  Serious: Yes (Other)
  Sender: FDA-Public Use
  Company Number: JP-ASTRAZENECA-2019SE36981

PATIENT
  Age: 65 Year
  Sex: Female

DRUGS (1)
  1. LYNPARZA [Suspect]
     Active Substance: OLAPARIB
     Indication: OVARIAN CANCER STAGE IV
     Dosage: 150.0MG UNKNOWN
     Route: 048

REACTIONS (1)
  - Malignant neoplasm progression [Unknown]
